FAERS Safety Report 23515153 (Version 3)
Quarter: 2024Q1

REPORT INFORMATION
  Report Type: Spontaneous
  Country: BR (occurrence: BR)
  Receive Date: 20240213
  Receipt Date: 20240314
  Transmission Date: 20240409
  Serious: Yes (Hospitalization)
  Sender: FDA-Public Use
  Company Number: BR-BoehringerIngelheim-2024-BI-007140

PATIENT
  Age: 67 Year
  Sex: Female

DRUGS (5)
  1. FENOTEROL HYDROBROMIDE\IPRATROPIUM BROMIDE [Suspect]
     Active Substance: FENOTEROL HYDROBROMIDE\IPRATROPIUM BROMIDE
     Indication: Chronic obstructive pulmonary disease
     Dosage: AEROSOL. 4 TIMES A DAY, 2 TIMES IN THE MORNING AND THE REMAINING 2 IN THE EVENING.
     Route: 048
  2. FENOTEROL HYDROBROMIDE\IPRATROPIUM BROMIDE [Suspect]
     Active Substance: FENOTEROL HYDROBROMIDE\IPRATROPIUM BROMIDE
     Dosage: AEROSOL. ?DEPENDING ON THE NEED (IF SHE MADE MORE INTENSE EFFORTS AND HAD A SHORTNESS OF BREATH CRIS
     Route: 048
  3. IPRATROPIUM BROMIDE [Suspect]
     Active Substance: IPRATROPIUM BROMIDE\IPRATROPIUM BROMIDE ANHYDROUS
     Indication: Asthma
     Dosage: AEROSOL.?WHEN SHE FELT IT WAS NECESSARY, SHE COULD USE IT MORE OFTEN.
  4. IPRATROPIUM BROMIDE [Suspect]
     Active Substance: IPRATROPIUM BROMIDE\IPRATROPIUM BROMIDE ANHYDROUS
     Indication: Chronic obstructive pulmonary disease
     Dosage: AEROSOL.?4 TIMES A DAY, 2 IN THE MORNING AND 2 IN THE EVENING.
     Route: 048
  5. OXYGEN [Concomitant]
     Active Substance: OXYGEN
     Indication: Product used for unknown indication
     Dosage: THE PATIENT ALSO USES AN OXYGEN CYLINDER, BUT NOT FULL-TIME

REACTIONS (8)
  - Pneumonia [Recovered/Resolved]
  - Pneumonia [Unknown]
  - Pneumonia [Recovered/Resolved]
  - Dyspnoea [Not Recovered/Not Resolved]
  - Drug ineffective [Unknown]
  - Dyspnoea [Not Recovered/Not Resolved]
  - Pneumonia [Unknown]
  - Pneumonia [Unknown]

NARRATIVE: CASE EVENT DATE: 20160101
